FAERS Safety Report 10476530 (Version 1)
Quarter: 2014Q3

REPORT INFORMATION
  Report Type: Spontaneous
  Country: NO (occurrence: NO)
  Receive Date: 20140925
  Receipt Date: 20140925
  Transmission Date: 20150326
  Serious: Yes (Other)
  Sender: FDA-Public Use
  Company Number: NO-GLAXOSMITHKLINE-B1036942A

PATIENT
  Sex: Female

DRUGS (1)
  1. WELLBUTRIN [Suspect]
     Active Substance: BUPROPION HYDROCHLORIDE
     Indication: DEPRESSION
     Route: 065

REACTIONS (12)
  - Convulsion [Unknown]
  - Wheezing [Unknown]
  - Chills [Unknown]
  - Flushing [Unknown]
  - Dizziness [Unknown]
  - Arthralgia [Unknown]
  - Paralysis [Unknown]
  - Weight decreased [Unknown]
  - Headache [Recovered/Resolved]
  - Nausea [Unknown]
  - Chest pain [Unknown]
  - Palpitations [Unknown]
